FAERS Safety Report 15173373 (Version 1)
Quarter: 2018Q3

REPORT INFORMATION
  Report Type: Spontaneous
  Country: JP (occurrence: JP)
  Receive Date: 20180720
  Receipt Date: 20180720
  Transmission Date: 20181010
  Serious: Yes (Other)
  Sender: FDA-Public Use
  Company Number: JP-BAYER-2018-132029

PATIENT
  Age: 34 Year
  Sex: Female

DRUGS (2)
  1. BAYASPIRIN 100 MG [Suspect]
     Active Substance: ASPIRIN
     Indication: HABITUAL ABORTION
     Dosage: DAILY DOSE 100 MG
     Route: 048
  2. SAIREI?TO [Concomitant]
     Active Substance: UNSPECIFIED INGREDIENT
     Route: 048

REACTIONS (5)
  - Premature delivery [None]
  - Maternal exposure during pregnancy [None]
  - Product use in unapproved indication [None]
  - Caesarean section [None]
  - Off label use [None]
